FAERS Safety Report 11133410 (Version 14)
Quarter: 2016Q1

REPORT INFORMATION
  Report Type: Report from Study
  Country: US (occurrence: US)
  Receive Date: 20150522
  Receipt Date: 20160316
  Transmission Date: 20160525
  Serious: Yes (Hospitalization, Other)
  Sender: FDA-Public Use
  Company Number: US-SA-2015SA012696

PATIENT
  Age: 64 Year
  Sex: Male

DRUGS (5)
  1. PROVIGIL [Concomitant]
     Active Substance: MODAFINIL
  2. ULTRAM [Suspect]
     Active Substance: TRAMADOL HYDROCHLORIDE
     Route: 065
  3. LEMTRADA [Suspect]
     Active Substance: ALEMTUZUMAB
     Indication: MULTIPLE SCLEROSIS
     Route: 041
     Dates: start: 20150119, end: 20150123
  4. IMURAN [Concomitant]
     Active Substance: AZATHIOPRINE
     Indication: CROHN^S DISEASE
  5. LEMTRADA [Suspect]
     Active Substance: ALEMTUZUMAB
     Indication: MULTIPLE SCLEROSIS
     Route: 041
     Dates: start: 20160208, end: 20160210

REACTIONS (45)
  - Extraocular muscle paresis [Unknown]
  - Pain [Not Recovered/Not Resolved]
  - Malaise [Unknown]
  - Peripheral swelling [Unknown]
  - Condition aggravated [Unknown]
  - Abdominal distension [Unknown]
  - Choking [Unknown]
  - Blood pressure fluctuation [Unknown]
  - Heart rate increased [Unknown]
  - Fatigue [Not Recovered/Not Resolved]
  - Pain in extremity [Unknown]
  - Constipation [Not Recovered/Not Resolved]
  - Herpes zoster [Unknown]
  - Poor venous access [Not Recovered/Not Resolved]
  - Limb deformity [Unknown]
  - Urinary tract infection [Unknown]
  - Nightmare [Not Recovered/Not Resolved]
  - Flatulence [Unknown]
  - Nephrolithiasis [Unknown]
  - Nuclear magnetic resonance imaging abnormal [Unknown]
  - Pyrexia [Recovered/Resolved]
  - Joint injury [Not Recovered/Not Resolved]
  - Blister [Recovered/Resolved]
  - Feeling abnormal [Unknown]
  - Infusion related reaction [Unknown]
  - Vomiting [Unknown]
  - Anal sphincter atony [Unknown]
  - Ill-defined disorder [Unknown]
  - Paraesthesia [Unknown]
  - Viral infection [Unknown]
  - Anal injury [Unknown]
  - Gastric disorder [Unknown]
  - Diarrhoea [Not Recovered/Not Resolved]
  - Arthralgia [Not Recovered/Not Resolved]
  - Skin disorder [Unknown]
  - Intestinal obstruction [Not Recovered/Not Resolved]
  - Abdominal pain upper [Unknown]
  - Rash generalised [Not Recovered/Not Resolved]
  - Central venous catheterisation [Unknown]
  - Weight decreased [Not Recovered/Not Resolved]
  - Hypersomnia [Unknown]
  - Lacrimation increased [Unknown]
  - Mobility decreased [Not Recovered/Not Resolved]
  - Feeding disorder [Unknown]
  - Therapeutic response decreased [Unknown]

NARRATIVE: CASE EVENT DATE: 2015
